FAERS Safety Report 14123725 (Version 1)
Quarter: 2017Q4

REPORT INFORMATION
  Report Type: Report from Study
  Country: IN (occurrence: None)
  Receive Date: 20171020
  Receipt Date: 20171020
  Transmission Date: 20180321
  Serious: Yes (Hospitalization)
  Sender: FDA-Public Use
  Company Number: 2017-001379

PATIENT
  Age: 33 Year
  Sex: Male
  Weight: 76.4 kg

DRUGS (1)
  1. AZITHROMYCIN (AZITHROMYCIN) SUSPENSION, 40MG/ML [Suspect]
     Active Substance: AZITHROMYCIN
     Indication: BACTERIAL INFECTION
     Route: 048
     Dates: start: 20170302, end: 20170302

REACTIONS (4)
  - Ulna fracture [None]
  - Comminuted fracture [None]
  - Fall [None]
  - Radius fracture [None]

NARRATIVE: CASE EVENT DATE: 20170303
